FAERS Safety Report 10399657 (Version 1)
Quarter: 2014Q3

REPORT INFORMATION
  Report Type: Report from Study
  Country: PK (occurrence: PK)
  Receive Date: 20140821
  Receipt Date: 20140821
  Transmission Date: 20150326
  Serious: Yes (Death)
  Sender: FDA-Public Use
  Company Number: PHHY2014PK104115

PATIENT
  Age: 70 Year
  Sex: Male

DRUGS (1)
  1. EXELON PATCH [Suspect]
     Active Substance: RIVASTIGMINE
     Indication: DEMENTIA ALZHEIMER^S TYPE
     Dosage: 4.5 MG PER 24 HOURS (1PATCH DAILY) (5 CM PATCH)
     Route: 062
     Dates: start: 20140715

REACTIONS (1)
  - Death [Fatal]

NARRATIVE: CASE EVENT DATE: 20140802
